FAERS Safety Report 7023036-3 (Version None)
Quarter: 2010Q3

REPORT INFORMATION
  Report Type: 
  Country: None (occurrence: None)
  Receive Date: 20100930
  Receipt Date: 20100921
  Transmission Date: 20110219
  Serious: Yes (Other)
  Sender: FDA-Public Use
  Company Number: CO-WYE-H17731810

PATIENT
  Sex: Male

DRUGS (11)
  1. RAPAMUNE [Suspect]
     Indication: RENAL TRANSPLANT
     Route: 048
     Dates: start: 20060101, end: 20100101
  2. RAPAMUNE [Suspect]
     Route: 048
     Dates: start: 20100101
  3. PREDNISOLONE [Concomitant]
     Indication: RENAL TRANSPLANT
  4. ENALAPRIL MALEATE [Concomitant]
     Indication: HYPERTENSION
     Dosage: UNSPECIFIED
     Dates: start: 19990101
  5. CALCITRIOL [Concomitant]
     Dosage: UNSPECIFIED
     Dates: start: 19990101
  6. VERAPAMIL [Concomitant]
     Indication: HYPERTENSION
     Dosage: UNSPECIFIED
  7. CALCIUM [Concomitant]
     Indication: MEDICAL DIET
     Dosage: UNSPECIFIED
     Dates: start: 19990101
  8. LOVASTATIN [Concomitant]
     Indication: BLOOD CHOLESTEROL INCREASED
     Dosage: UNSPECIFIED
  9. LOVASTATIN [Concomitant]
     Indication: BLOOD TRIGLYCERIDES INCREASED
  10. CELLCEPT [Concomitant]
     Indication: RENAL TRANSPLANT
     Dates: start: 19990101
  11. LOSARTAN POTASSIUM [Concomitant]
     Indication: HYPERTENSION
     Dosage: UNSPECIFIED
     Dates: start: 20100401

REACTIONS (2)
  - BLOOD CREATININE INCREASED [None]
  - RENAL DISORDER [None]
